FAERS Safety Report 13154260 (Version 1)
Quarter: 2017Q1

REPORT INFORMATION
  Report Type: Spontaneous
  Country: US (occurrence: US)
  Receive Date: 20170126
  Receipt Date: 20170126
  Transmission Date: 20170428
  Serious: No
  Sender: FDA-Public Use
  Company Number: US-AMGEN-USASP2016128743

PATIENT
  Age: 55 Year

DRUGS (3)
  1. CYTOXAN [Concomitant]
     Active Substance: CYCLOPHOSPHAMIDE
     Dosage: UNK
     Dates: end: 2016
  2. KYPROLIS [Suspect]
     Active Substance: CARFILZOMIB
     Indication: PRODUCT USED FOR UNKNOWN INDICATION
     Dosage: UNK
     Route: 065
     Dates: end: 2016
  3. DEXAMETHASONE. [Concomitant]
     Active Substance: DEXAMETHASONE
     Dosage: UNK
     Dates: end: 2016

REACTIONS (7)
  - Weight decreased [Unknown]
  - Feeling abnormal [Unknown]
  - Fatigue [Unknown]
  - Dyspnoea [Unknown]
  - Neuropathy peripheral [Unknown]
  - Chest discomfort [Unknown]
  - Anaemia [Unknown]

NARRATIVE: CASE EVENT DATE: 201608
